FAERS Safety Report 4728635-7 (Version None)
Quarter: 2005Q3

REPORT INFORMATION
  Report Type: 
  Country: None (occurrence: None)
  Receive Date: 20050727
  Receipt Date: 20050718
  Transmission Date: 20060218
  Serious: Yes (Other)
  Sender: FDA-Public Use
  Company Number: 2005-07-1415

PATIENT
  Age: 45 Year
  Sex: Female

DRUGS (15)
  1. INTRON A [Suspect]
     Dosage: UNKNOWN; SUBCUTANEOUS
     Route: 058
  2. RITUXIMAB INJECTABLE [Suspect]
     Dosage: 375 MG/M^2; INTRAVENOUS
     Route: 042
  3. FLUDARABINE INJECTABLE [Suspect]
     Dosage: 25MG/M^2 D1-3; INTRAVENOUS
     Route: 042
  4. MITOXANTRONE INJECTABLE [Suspect]
     Dosage: 10MG/M^2 D-1; INTRAVENOUS
     Route: 042
  5. DEXAMETHASONE [Suspect]
     Dosage: 20MG; ORAL
     Route: 048
  6. CYCLOPHOSPHAMIDE INJECTION [Suspect]
     Dosage: ; 12 CYCLE(S)
  7. DOXORUBICIN HCL [Suspect]
     Dosage: 12 CYCLE(S)
  8. VINCRISTINE [Suspect]
     Indication: LYMPHOMA
     Dosage: 12 CYCLE(S)
  9. BLEOMYCIN [Suspect]
     Indication: LYMPHOMA
     Dosage: 12 CYCLE(S)
  10. ETOPOSIDE [Suspect]
     Indication: LYMPHOMA
     Dosage: 12 CYCLE(S)
  11. METHYLPREDNISOLONE 16MG TAB [Suspect]
     Indication: LYMPHOMA
     Dosage: 12 CYCLE(S)
  12. CYTARABINE [Suspect]
     Indication: LYMPHOMA
     Dosage: 12 CYCLE(S)
  13. CISPLATIN [Suspect]
     Indication: LYMPHOMA
     Dosage: 12 CYCLE(S)
  14. PREDNISONE [Suspect]
     Indication: LYMPHOMA
     Dosage: 12 CYCLE(S)
  15. PROCARBAZINE [Suspect]
     Indication: LYMPHOMA
     Dosage: 12 CYCLE(S)

REACTIONS (1)
  - REFRACTORY ANAEMIA WITH AN EXCESS OF BLASTS [None]
